FAERS Safety Report 6668032-0 (Version None)
Quarter: 2010Q2

REPORT INFORMATION
  Report Type: 
  Country: None (occurrence: None)
  Receive Date: 20100405
  Receipt Date: 20100326
  Transmission Date: 20101027
  Serious: Yes (Hospitalization, Other)
  Sender: FDA-Public Use
  Company Number: BR-ABBOTT-09P-020-0610799-00

PATIENT
  Sex: Female
  Weight: 70 kg

DRUGS (12)
  1. HUMIRA [Suspect]
     Indication: RHEUMATOID ARTHRITIS
     Route: 058
     Dates: start: 20090616, end: 20091201
  2. ARAVA [Concomitant]
     Indication: RHEUMATOID ARTHRITIS
     Route: 048
  3. DEFLAZACORT [Concomitant]
     Indication: RHEUMATOID ARTHRITIS
     Route: 048
     Dates: start: 20090601, end: 20091222
  4. KETOROLAC TROMETAMOL [Concomitant]
     Indication: PAIN
     Route: 060
  5. PANTOPRAZOLE SODIUM [Concomitant]
     Indication: GASTRIC DISORDER
     Route: 048
  6. CORUS H [Concomitant]
     Indication: HYPERTENSION
     Dosage: (50MG/ - ) 1 IN 12 HOURS
     Route: 048
  7. RUTOSIDE/AESCULUS/MIROTON (VENOCUR TRIPLEX) [Concomitant]
     Indication: RHEUMATOID VASCULITIS
     Route: 048
     Dates: start: 20080101
  8. RUTOSIDE/AESCULUS/MIROTON (VENOCUR TRIPLEX) [Concomitant]
     Indication: PANNICULITIS
  9. BENZETACIL [Concomitant]
     Indication: VASCULITIS
     Dates: start: 20080101
  10. BENZETACIL [Concomitant]
     Indication: PANNICULITIS
  11. CORUS [Concomitant]
     Indication: HYPERTENSION
     Route: 058
     Dates: start: 20070101
  12. CORUS [Concomitant]
     Route: 048

REACTIONS (10)
  - DEVICE DISLOCATION [None]
  - DRUG EFFECT DECREASED [None]
  - DRUG INEFFECTIVE [None]
  - GAIT DISTURBANCE [None]
  - OSTEOPOROSIS [None]
  - PAIN [None]
  - PANNICULITIS [None]
  - RED BLOOD CELL SEDIMENTATION RATE INCREASED [None]
  - RHEUMATOID ARTHRITIS [None]
  - WEIGHT DECREASED [None]
